FAERS Safety Report 6893295-6 (Version None)
Quarter: 2010Q3

REPORT INFORMATION
  Report Type: 
  Country: None (occurrence: None)
  Receive Date: 20100731
  Receipt Date: 20090803
  Transmission Date: 20110219
  Serious: No
  Sender: FDA-Public Use
  Company Number: US-PFIZER INC-2009203108

PATIENT

DRUGS (1)
  1. NEURONTIN [Suspect]
     Dosage: 5400 MG, UNK

REACTIONS (2)
  - BRADYCARDIA [None]
  - INCORRECT DOSE ADMINISTERED [None]
